FAERS Safety Report 18633483 (Version 1)
Quarter: 2020Q4

REPORT INFORMATION
  Report Type: Spontaneous
  Country: US (occurrence: US)
  Receive Date: 20201217
  Receipt Date: 20201217
  Transmission Date: 20210114
  Serious: Yes (Hospitalization)
  Sender: FDA-Public Use
  Company Number: None

PATIENT
  Age: 87 Year
  Sex: Female
  Weight: 79.8 kg

DRUGS (30)
  1. FIBER CAPSULE [Concomitant]
  2. THIAMINE HCL [Concomitant]
     Active Substance: THIAMINE HYDROCHLORIDE
  3. IPRATROPIUM-ALBUTEROL SOLUTION [Concomitant]
  4. ADVAIR HFA [Concomitant]
     Active Substance: FLUTICASONE PROPIONATE\SALMETEROL XINAFOATE
  5. VITAMIN B-COMPLEX [Concomitant]
     Active Substance: DEXPANTHENOL\NIACINAMIDE\PYRIDOXINE HYDROCHLORIDE\RIBOFLAVIN 5^-PHOSPHATE SODIUM\THIAMINE HYDROCHLORIDE
  6. NAMENDA [Concomitant]
     Active Substance: MEMANTINE HYDROCHLORIDE
  7. ALBUTEROL. [Concomitant]
     Active Substance: ALBUTEROL
  8. VIT B-12 [Concomitant]
  9. MELATONIN [Concomitant]
     Active Substance: MELATONIN
  10. MOBIC [Concomitant]
     Active Substance: MELOXICAM
  11. MUCINEX TAB EXTENDED RELEASE [Concomitant]
  12. HYDROCODONE-ACETAMINOPHEN [Concomitant]
     Active Substance: ACETAMINOPHEN\HYDROCODONE
  13. SINGULAIR [Concomitant]
     Active Substance: MONTELUKAST SODIUM
  14. ST. JOHN^S WART [Concomitant]
  15. TESSALON CAPSULE [Concomitant]
  16. VESICARE [Concomitant]
     Active Substance: SOLIFENACIN SUCCINATE
  17. LEXAPRO [Concomitant]
     Active Substance: ESCITALOPRAM OXALATE
  18. MIRAPEX [Concomitant]
     Active Substance: PRAMIPEXOLE DIHYDROCHLORIDE
  19. BAMLANIVIMAB. [Suspect]
     Active Substance: BAMLANIVIMAB
     Indication: COVID-19
     Route: 042
     Dates: start: 20201210, end: 20201210
  20. LASIX [Concomitant]
     Active Substance: FUROSEMIDE
  21. POTASSIUM CHLORIDE EXT RELEASE [Concomitant]
  22. CALCIUM-D [Concomitant]
  23. COREG [Concomitant]
     Active Substance: CARVEDILOL
  24. FERROUS SULFATE. [Concomitant]
     Active Substance: FERROUS SULFATE
  25. FAXOFENADINE HCL [Concomitant]
  26. FLUTICASONE PROPIONATE SUSPENSION [Concomitant]
  27. FOLIC ACID. [Concomitant]
     Active Substance: FOLIC ACID
  28. PROTONIX DELAYED RELEASE [Concomitant]
  29. VITAMIN D3 [Concomitant]
     Active Substance: CHOLECALCIFEROL
  30. LEVOTHYROXINE. [Concomitant]
     Active Substance: LEVOTHYROXINE

REACTIONS (5)
  - Wheezing [None]
  - Atrial fibrillation [None]
  - Oxygen saturation decreased [None]
  - Dyspnoea [None]
  - Heart rate increased [None]

NARRATIVE: CASE EVENT DATE: 20201210
